FAERS Safety Report 5624751-6 (Version None)
Quarter: 2008Q1

REPORT INFORMATION
  Report Type: 
  Country: None (occurrence: None)
  Receive Date: 20080213
  Receipt Date: 20080208
  Transmission Date: 20080703
  Serious: Yes (Death)
  Sender: FDA-Public Use
  Company Number: GB-MERCK-0706GBR00023

PATIENT
  Age: 76 Year
  Sex: Male

DRUGS (15)
  1. ZOCOR [Suspect]
     Indication: BLOOD CHOLESTEROL INCREASED
     Route: 048
     Dates: end: 20070305
  2. CHLORPHENIRAMINE MALEATE [Suspect]
     Indication: ADVERSE EVENT
     Route: 048
     Dates: start: 20070228, end: 20070307
  3. QUININE SULFATE [Suspect]
     Indication: MUSCLE SPASMS
     Route: 048
     Dates: start: 20070216, end: 20070309
  4. TIGECYCLINE [Suspect]
     Indication: ENTEROBACTER INFECTION
     Route: 042
     Dates: start: 20070305, end: 20070305
  5. TIGECYCLINE [Suspect]
     Route: 042
     Dates: start: 20070306, end: 20070307
  6. ASPIRIN [Concomitant]
     Route: 065
     Dates: end: 20070321
  7. CIPROFLOXACIN [Concomitant]
     Route: 065
     Dates: start: 20070316, end: 20070321
  8. AMOXICILLIN AND CLAVULANATE POTASSIUM [Concomitant]
     Route: 065
     Dates: start: 20070310, end: 20070313
  9. FOLIC ACID [Concomitant]
     Route: 065
     Dates: end: 20070321
  10. DALTEPARIN SODIUM [Concomitant]
     Route: 065
     Dates: start: 20070203
  11. LANSOPRAZOLE [Concomitant]
     Route: 065
     Dates: end: 20070321
  12. LEVOTHYROXINE SODIUM [Concomitant]
     Route: 065
     Dates: start: 20070118
  13. MORPHINE SULFATE [Concomitant]
     Route: 065
     Dates: start: 20070302
  14. TIGECYCLINE [Suspect]
     Indication: STAPHYLOCOCCAL INFECTION
     Route: 042
     Dates: start: 20070310, end: 20070321
  15. TIGECYCLINE [Suspect]
     Route: 042

REACTIONS (4)
  - ALANINE AMINOTRANSFERASE INCREASED [None]
  - BLOOD ALKALINE PHOSPHATASE INCREASED [None]
  - BLOOD BILIRUBIN INCREASED [None]
  - DEATH [None]
